FAERS Safety Report 4506944-4 (Version None)
Quarter: 2004Q4

REPORT INFORMATION
  Report Type: 
  Country: None (occurrence: None)
  Receive Date: 20041117
  Receipt Date: 20041110
  Transmission Date: 20050328
  Serious: Yes (Hospitalization)
  Sender: FDA-Public Use
  Company Number: MK200411-0126-1

PATIENT
  Sex: Female

DRUGS (1)
  1. CLOMIPRAMINE HCL [Suspect]
     Dosage: TRANSPLANCENTAL
     Route: 064

REACTIONS (13)
  - APGAR SCORE LOW [None]
  - BASE EXCESS DECREASED [None]
  - BLOOD PH DECREASED [None]
  - CYANOSIS NEONATAL [None]
  - DEPRESSED LEVEL OF CONSCIOUSNESS [None]
  - DRUG EXPOSURE DURING PREGNANCY [None]
  - DRUG TOXICITY [None]
  - DRUG WITHDRAWAL SYNDROME NEONATAL [None]
  - HYPERTONIA NEONATAL [None]
  - HYPOTONIA NEONATAL [None]
  - NEONATAL DISORDER [None]
  - PCO2 INCREASED [None]
  - RESPIRATORY DISORDER NEONATAL [None]
